FAERS Safety Report 9882095 (Version 1)
Quarter: 2014Q1

REPORT INFORMATION
  Report Type: Spontaneous
  Country: US (occurrence: US)
  Receive Date: 20140207
  Receipt Date: 20140207
  Transmission Date: 20141002
  Serious: Yes (Hospitalization)
  Sender: FDA-Public Use
  Company Number: US-BAYER-2014-017284

PATIENT
  Age: 31 Year
  Sex: Female

DRUGS (1)
  1. MIRENA [Suspect]
     Indication: CONTRACEPTION
     Dosage: UNK
     Route: 015
     Dates: start: 2011, end: 201310

REACTIONS (5)
  - Grand mal convulsion [None]
  - Abdominal pain upper [None]
  - Mood altered [None]
  - Loss of libido [Not Recovered/Not Resolved]
  - Migraine [Not Recovered/Not Resolved]
